FAERS Safety Report 10083180 (Version 2)
Quarter: 2014Q2

REPORT INFORMATION
  Report Type: Spontaneous
  Country: US (occurrence: US)
  Receive Date: 20140417
  Receipt Date: 20140508
  Transmission Date: 20141212
  Serious: Yes (Hospitalization)
  Sender: FDA-Public Use
  Company Number: US-UCBSA-117836

PATIENT
  Age: 39 Year
  Sex: Female
  Weight: 107.9 kg

DRUGS (13)
  1. VIMPAT [Suspect]
     Indication: CONVULSION
     Route: 048
     Dates: start: 201309
  2. GENERIC KEPPRA [Suspect]
     Indication: CONVULSION
     Dosage: STRENGTH: 500 MG
     Route: 048
     Dates: start: 201309
  3. FOLIC ACID [Concomitant]
     Route: 048
  4. FENOFIBRATE [Concomitant]
     Route: 048
  5. SIMVASTATIN [Concomitant]
     Dosage: 1/2 TABLET QHS
     Route: 048
  6. METOPROLOL SUCC ER [Concomitant]
     Route: 048
  7. EFFEXOR XR [Concomitant]
     Dosage: EVERY BED TIME
     Route: 048
  8. LOSARTAN POTASSIUM [Concomitant]
     Route: 048
  9. CHLORTHALIDONE [Concomitant]
     Route: 048
  10. LORAZEPAM [Concomitant]
     Dosage: QD PRN
     Route: 048
  11. FAMOTIDINE [Concomitant]
     Route: 048
  12. POTASSIUM CL ER [Concomitant]
     Route: 048
  13. FLUTICASONE PROPIONATE [Concomitant]
     Dosage: TWO PUFFS EACH NOSTRL EACH DAY

REACTIONS (3)
  - Seizure cluster [Recovered/Resolved]
  - Somnolence [Not Recovered/Not Resolved]
  - Asthenia [Not Recovered/Not Resolved]
